FAERS Safety Report 20898399 (Version 2)
Quarter: 2022Q2

REPORT INFORMATION
  Report Type: Spontaneous
  Country: JP (occurrence: JP)
  Receive Date: 20220601
  Receipt Date: 20220616
  Transmission Date: 20220721
  Serious: Yes (Death)
  Sender: FDA-Public Use
  Company Number: JP-MALLINCKRODT-T202202692

PATIENT
  Age: 64 Year
  Sex: Male

DRUGS (2)
  1. NITRIC OXIDE [Suspect]
     Active Substance: NITRIC OXIDE
     Indication: Pulmonary hypertension
     Dosage: 10 PPM (INHALATION)
     Route: 055
     Dates: start: 20220510, end: 202205
  2. NITRIC OXIDE [Suspect]
     Active Substance: NITRIC OXIDE
     Dosage: 20 PPM (INHALATION)
     Route: 055
     Dates: start: 202205, end: 20220517

REACTIONS (1)
  - Pulmonary tumour thrombotic microangiopathy [Fatal]

NARRATIVE: CASE EVENT DATE: 20220517
